FAERS Safety Report 5640572-2 (Version None)
Quarter: 2008Q1

REPORT INFORMATION
  Report Type: 
  Country: None (occurrence: None)
  Receive Date: 20080227
  Receipt Date: 20080219
  Transmission Date: 20080703
  Serious: Yes (Other)
  Sender: FDA-Public Use
  Company Number: PHBS2008BR02504

PATIENT
  Age: 52 Year
  Sex: Female

DRUGS (3)
  1. RASILEZ [Suspect]
     Indication: HYPERTENSION
     Dosage: 150 MG, QD
     Route: 048
     Dates: start: 20071201
  2. ATACAND [Concomitant]
     Indication: HYPERTENSION
     Dosage: 160 MG/DAY
     Route: 048
  3. INDAPAMIDE [Concomitant]
     Indication: HYPERTENSION
     Dosage: 1.5 MG/DAY
     Route: 048

REACTIONS (2)
  - BRONCHOSPASM [None]
  - FATIGUE [None]
